FAERS Safety Report 5850895-X (Version None)
Quarter: 2008Q3

REPORT INFORMATION
  Report Type: 
  Country: None (occurrence: None)
  Receive Date: 20080819
  Receipt Date: 20080819
  Transmission Date: 20090109
  Serious: Yes (Death)
  Sender: FDA-Public Use
  Company Number: None

PATIENT
  Age: 37 Year
  Sex: Male

DRUGS (2)
  1. METHADONE HCL [Suspect]
     Indication: BACK PAIN
     Dosage: PO
     Route: 048
  2. BENZODIAZAPINE [Concomitant]

REACTIONS (4)
  - CHRONIC OBSTRUCTIVE PULMONARY DISEASE [None]
  - DRUG TOXICITY [None]
  - RESPIRATORY ARREST [None]
  - SKIN DISCOLOURATION [None]
